FAERS Safety Report 7388646-2 (Version None)
Quarter: 2011Q2

REPORT INFORMATION
  Report Type: 
  Country: None (occurrence: None)
  Receive Date: 20110401
  Receipt Date: 20110321
  Transmission Date: 20111010
  Serious: Yes (Other)
  Sender: FDA-Public Use
  Company Number: US-JNJFOC-20110309378

PATIENT
  Age: 30 Year
  Sex: Female
  Weight: 51.71 kg

DRUGS (2)
  1. TYLENOL-500 [Suspect]
     Route: 048
  2. TYLENOL-500 [Suspect]
     Indication: PAIN
     Route: 048

REACTIONS (9)
  - MEMORY IMPAIRMENT [None]
  - HALLUCINATION [None]
  - HYPERHIDROSIS [None]
  - INSOMNIA [None]
  - NAUSEA [None]
  - PAIN [None]
  - PALPITATIONS [None]
  - ABDOMINAL PAIN UPPER [None]
  - DIARRHOEA [None]
